FAERS Safety Report 6086928-8 (Version None)
Quarter: 2009Q1

REPORT INFORMATION
  Report Type: 
  Country: None (occurrence: None)
  Receive Date: 20090223
  Receipt Date: 20090217
  Transmission Date: 20090719
  Serious: Yes (Other)
  Sender: FDA-Public Use
  Company Number: US-AVENTIS-200911303US

PATIENT
  Sex: Female

DRUGS (4)
  1. LANTUS [Suspect]
     Dosage: DOSE: 50 UNITS IN THE MORNING AND 50 UNITS IN THE EVENING
     Route: 058
  2. OPTICLIK (INSULIN INJECTION PEN) [Suspect]
     Dates: start: 20050101
  3. HUMALOG [Concomitant]
     Dosage: DOSE: UNK
  4. CARDIOVASCULAR SYSTEM DRUGS [Concomitant]
     Dosage: DOSE: UNK

REACTIONS (2)
  - CATARACT [None]
  - LOCALISED INFECTION [None]
